FAERS Safety Report 8499251-9 (Version None)
Quarter: 2012Q3

REPORT INFORMATION
  Report Type: 
  Country: None (occurrence: None)
  Receive Date: 20120710
  Receipt Date: 20120702
  Transmission Date: 20120928
  Serious: No
  Sender: FDA-Public Use
  Company Number: PHEH2012US012239

PATIENT
  Sex: Female

DRUGS (14)
  1. WARFARIN SODIUM [Concomitant]
     Dosage: 1 DF, QD
     Route: 048
  2. BUPROPION HCL [Concomitant]
     Dosage: 2 DF, QD
     Route: 048
  3. HYDROCODONE BITARTRATE + ACETAMINOPHEN [Concomitant]
     Indication: PAIN
     Dosage: 1 DF, Q4H
     Route: 048
  4. LASIX [Concomitant]
     Dosage: 1 DF, BID
     Route: 048
  5. SYNTHROID [Concomitant]
  6. VIAGRA [Concomitant]
     Dosage: 1 DF, TID
     Route: 048
  7. ONDANSETRON HYDROCHLORIDE [Concomitant]
     Dosage: 1 DF, BID
  8. DIGOXIN [Concomitant]
     Dosage: 1 DF DAILY
     Route: 048
  9. PENICILLIN [Concomitant]
     Dosage: 1 DF, QID
     Route: 048
  10. SPIRONOLACTONE [Concomitant]
     Dosage: 1 DF, BID
     Route: 048
  11. TASIGNA [Suspect]
     Indication: MYELOID LEUKAEMIA
     Dosage: 200 MG, BID
     Route: 048
     Dates: start: 20120614
  12. NEURONTIN [Concomitant]
     Dosage: 1 DF, BID
     Route: 048
  13. XANAX [Concomitant]
     Dosage: 1 DF, QD
     Route: 048
  14. PROCHLORPERAZINE MALEATE [Concomitant]
     Indication: NAUSEA
     Dosage: 1 DF, Q6H
     Route: 048

REACTIONS (3)
  - ARRHYTHMIA [None]
  - VISION BLURRED [None]
  - PALPITATIONS [None]
